FAERS Safety Report 4947027-9 (Version None)
Quarter: 2006Q1

REPORT INFORMATION
  Report Type: 
  Country: None (occurrence: None)
  Receive Date: 20060317
  Receipt Date: 20060308
  Transmission Date: 20060701
  Serious: Yes (Hospitalization)
  Sender: FDA-Public Use
  Company Number: 2006UW03902

PATIENT
  Age: 83 Year
  Sex: Female

DRUGS (6)
  1. SEROQUEL [Suspect]
     Indication: SCHIZOPHRENIA
     Route: 048
     Dates: end: 20060307
  2. NEXIUM [Concomitant]
     Route: 048
  3. INSULIN [Concomitant]
  4. CARDIZEM [Concomitant]
  5. METOPROLOL [Concomitant]
  6. AMIODARONE HCL [Concomitant]

REACTIONS (1)
  - CARDIAC DISORDER [None]
